FAERS Safety Report 11497803 (Version 1)
Quarter: 2015Q3

REPORT INFORMATION
  Report Type: Spontaneous
  Country: CA (occurrence: CA)
  Receive Date: 20150911
  Receipt Date: 20150911
  Transmission Date: 20151125
  Serious: Yes (Other)
  Sender: FDA-Public Use
  Company Number: CA-ABBVIE-15P-028-1462520-00

PATIENT
  Age: 60 Year
  Sex: Female
  Weight: 77 kg

DRUGS (2)
  1. HYDROCHLOROTHIAZIDE. [Suspect]
     Active Substance: HYDROCHLOROTHIAZIDE
     Indication: PRODUCT USED FOR UNKNOWN INDICATION
     Route: 065
  2. MAVIK [Suspect]
     Active Substance: TRANDOLAPRIL
     Indication: HYPERTENSION
     Route: 048
     Dates: start: 20150212, end: 20150214

REACTIONS (6)
  - Nausea [Recovering/Resolving]
  - Dysphagia [Recovering/Resolving]
  - Headache [Recovering/Resolving]
  - Abdominal pain [Recovering/Resolving]
  - Burning sensation [Recovering/Resolving]
  - Rhinorrhoea [Recovering/Resolving]

NARRATIVE: CASE EVENT DATE: 20150212
